FAERS Safety Report 26105141 (Version 2)
Quarter: 2025Q4

REPORT INFORMATION
  Report Type: Report from Study
  Country: CA (occurrence: CA)
  Receive Date: 20251201
  Receipt Date: 20251209
  Transmission Date: 20260118
  Serious: Yes (Hospitalization, Other)
  Sender: TAKEDA
  Company Number: CA-TAKEDA-2025TUS096273

PATIENT
  Age: 65 Year
  Sex: Male

DRUGS (4)
  1. VEDOLIZUMAB [Suspect]
     Active Substance: VEDOLIZUMAB
     Indication: Colitis ulcerative
     Dosage: 300 MILLIGRAM
     Dates: start: 20251015, end: 20251028
  2. Cortiment [Concomitant]
     Dosage: 9 MILLIGRAM, QD
     Dates: start: 202509
  3. SIMPONI [Concomitant]
     Active Substance: GOLIMUMAB
     Indication: Uveitis
     Dosage: UNK
  4. HUMIRA [Concomitant]
     Active Substance: ADALIMUMAB
     Indication: Uveitis
     Dosage: UNK

REACTIONS (2)
  - Colitis ulcerative [Unknown]
  - Abdominal pain [Not Recovered/Not Resolved]
